FAERS Safety Report 7526252-7 (Version None)
Quarter: 2011Q2

REPORT INFORMATION
  Report Type: 
  Country: None (occurrence: None)
  Receive Date: 20110606
  Receipt Date: 20110526
  Transmission Date: 20111010
  Serious: Yes (Other)
  Sender: FDA-Public Use
  Company Number: PHHY2011PT47771

PATIENT
  Age: 30 Year
  Sex: Female

DRUGS (7)
  1. DOXORUBICIN HCL [Suspect]
     Indication: BREAST CANCER METASTATIC
     Dosage: UNK
     Dates: end: 20060101
  2. CYCLOPHOSPHAMIDE [Suspect]
     Indication: BREAST CANCER METASTATIC
     Dosage: UNK
     Dates: end: 20060101
  3. PACLITAXEL [Suspect]
     Indication: BREAST CANCER METASTATIC
     Dosage: 90 MG/M2, PER WEEK
     Dates: start: 20071101
  4. AVASTIN [Suspect]
     Indication: BREAST CANCER METASTATIC
     Dosage: 10 MG/KG, EVERY 2 WEEKS
     Dates: start: 20071101, end: 20090225
  5. DOCETAXEL [Suspect]
     Indication: BREAST CANCER METASTATIC
     Dosage: UNK
     Dates: end: 20060101
  6. TAMOXIFEN CITRATE [Suspect]
     Indication: BREAST CANCER METASTATIC
  7. BISPHOSPHONATES [Suspect]
     Indication: BREAST CANCER METASTATIC
     Dosage: UNK
     Dates: start: 20071101, end: 20090225

REACTIONS (16)
  - THROMBOSIS IN DEVICE [None]
  - NEUROTOXICITY [None]
  - MUCOSAL INFLAMMATION [None]
  - BACK PAIN [None]
  - METASTASES TO LIVER [None]
  - CHEST PAIN [None]
  - DYSPHONIA [None]
  - EPISTAXIS [None]
  - NEOPLASM MALIGNANT [None]
  - LIVER DISORDER [None]
  - ASTHENIA [None]
  - DIZZINESS [None]
  - FATIGUE [None]
  - HERPES ZOSTER [None]
  - HYPERTENSION [None]
  - POLLAKIURIA [None]
